FAERS Safety Report 5090352-4 (Version None)
Quarter: 2006Q3

REPORT INFORMATION
  Report Type: 
  Country: None (occurrence: None)
  Receive Date: 20060828
  Receipt Date: 20060726
  Transmission Date: 20061208
  Serious: No
  Sender: FDA-Public Use
  Company Number: US-GLAXOSMITHKLINE-A0613685A

PATIENT
  Age: 46 Year
  Sex: Male

DRUGS (3)
  1. WELLBUTRIN XL [Suspect]
     Indication: DEPRESSION
     Dosage: 150MG PER DAY
     Route: 048
     Dates: start: 20060701, end: 20060701
  2. ZOLOFT [Suspect]
     Indication: DRUG USE FOR UNKNOWN INDICATION
     Dosage: 150MG UNKNOWN
     Route: 065
  3. NEXIUM [Concomitant]

REACTIONS (4)
  - ANXIETY [None]
  - INSOMNIA [None]
  - NIGHTMARE [None]
  - SLEEP DISORDER [None]
